FAERS Safety Report 5594520-4 (Version None)
Quarter: 2008Q1

REPORT INFORMATION
  Report Type: 
  Country: None (occurrence: None)
  Receive Date: 20080115
  Receipt Date: 20071231
  Transmission Date: 20080703
  Serious: Yes (Life-Threatening, Other)
  Sender: FDA-Public Use
  Company Number: AECAN200800006

PATIENT
  Age: 81 Year
  Sex: Male

DRUGS (9)
  1. GAMUNEX [Suspect]
     Indication: DRUG USE FOR UNKNOWN INDICATION
     Dosage: .5 MG; IV
     Route: 042
  2. ALLOPURINOL [Suspect]
     Indication: DRUG USE FOR UNKNOWN INDICATION
     Dosage: 300 MG;1X;PO
     Route: 048
  3. ALPRAZOLAM [Concomitant]
  4. HYDROCHLOROTHIAZIDE [Concomitant]
  5. LEVOTHYROXINE SODIUM [Concomitant]
  6. LIPITOR [Concomitant]
  7. METOPROLOL TARTRATE [Concomitant]
  8. PREDNISONE [Concomitant]
  9. RANITIDINE [Concomitant]

REACTIONS (6)
  - BUNDLE BRANCH BLOCK RIGHT [None]
  - HYPERSENSITIVITY [None]
  - MYOCARDIAL INFARCTION [None]
  - PYREXIA [None]
  - RENAL IMPAIRMENT [None]
  - TOXIC EPIDERMAL NECROLYSIS [None]
